FAERS Safety Report 5372826-1 (Version None)
Quarter: 2007Q2

REPORT INFORMATION
  Report Type: 
  Country: None (occurrence: None)
  Receive Date: 20070627
  Receipt Date: 20070615
  Transmission Date: 20071010
  Serious: Yes (Other)
  Sender: FDA-Public Use
  Company Number: US-PFIZER INC-2007050340

PATIENT
  Age: 48 Year
  Sex: Male

DRUGS (7)
  1. CHANTIX [Suspect]
     Indication: SMOKING CESSATION THERAPY
  2. ADDERALL XR 10 [Concomitant]
  3. LEXAPRO [Concomitant]
  4. LIPITOR [Concomitant]
  5. ALLEGRA [Concomitant]
  6. SEPTRA DS [Concomitant]
  7. BENICAR [Concomitant]

REACTIONS (1)
  - CONFUSIONAL STATE [None]
